FAERS Safety Report 11533048 (Version 1)
Quarter: 2015Q3

REPORT INFORMATION
  Report Type: Spontaneous
  Country: US (occurrence: US)
  Receive Date: 20150921
  Receipt Date: 20150921
  Transmission Date: 20151125
  Serious: Yes (Hospitalization)
  Sender: FDA-Public Use
  Company Number: US-BAYER-2015-368552

PATIENT
  Age: 48 Year
  Sex: Male

DRUGS (6)
  1. XARELTO [Suspect]
     Active Substance: RIVAROXABAN
     Indication: CEREBROVASCULAR ACCIDENT PROPHYLAXIS
  2. XARELTO [Suspect]
     Active Substance: RIVAROXABAN
     Indication: ATRIAL FIBRILLATION
  3. ACETYLSALICYLIC ACID({=100 MG) [Suspect]
     Active Substance: ASPIRIN
     Indication: PRODUCT USED FOR UNKNOWN INDICATION
     Dosage: 81 MG, UNK
     Route: 065
  4. XARELTO [Suspect]
     Active Substance: RIVAROXABAN
     Indication: THROMBOSIS
     Dosage: 20 MG, UNK
     Route: 048
     Dates: start: 201407, end: 201409
  5. XARELTO [Suspect]
     Active Substance: RIVAROXABAN
     Indication: EMBOLISM VENOUS
  6. HYDROCODONE [Concomitant]
     Active Substance: HYDROCODONE
     Route: 065

REACTIONS (2)
  - Gastrointestinal haemorrhage [Recovering/Resolving]
  - Rectal haemorrhage [Recovering/Resolving]

NARRATIVE: CASE EVENT DATE: 20140814
